FAERS Safety Report 12435158 (Version 1)
Quarter: 2016Q2

REPORT INFORMATION
  Report Type: Spontaneous
  Country: US (occurrence: US)
  Receive Date: 20160603
  Receipt Date: 20160603
  Transmission Date: 20160815
  Serious: No
  Sender: FDA-Public Use
  Company Number: US-ROCHE-1695135

PATIENT
  Sex: Female

DRUGS (1)
  1. XELODA [Suspect]
     Active Substance: CAPECITABINE
     Indication: METASTASIS
     Route: 065
     Dates: start: 20141031, end: 20160114

REACTIONS (2)
  - Drug ineffective [Unknown]
  - No adverse event [Unknown]
